FAERS Safety Report 4452466-9 (Version None)
Quarter: 2004Q3

REPORT INFORMATION
  Report Type: 
  Country: None (occurrence: None)
  Receive Date: 20040916
  Receipt Date: 20040910
  Transmission Date: 20050211
  Serious: Yes (Hospitalization)
  Sender: FDA-Public Use
  Company Number: 200412666GDS

PATIENT
  Age: 75 Year
  Sex: Female

DRUGS (9)
  1. ASPIRIN [Suspect]
     Dosage: 300 MG, TOTAL DAILY, ORAL
     Route: 048
     Dates: end: 20040715
  2. ROFECOXIB [Suspect]
     Dosage: ORAL
     Route: 048
     Dates: end: 20040715
  3. DIPHENHYDRAMINE/LORAZEPAM [Concomitant]
  4. THIORIDAZINE HCL [Concomitant]
  5. PIRETANIDE/RAMIPRIL [Concomitant]
  6. PANTOPRAZOLE [Concomitant]
  7. LORAZEPAM [Concomitant]
  8. COLECALCIFEROL/CA [Concomitant]
  9. BETAHISTINE [Concomitant]

REACTIONS (3)
  - ANAEMIA [None]
  - HAEMATEMESIS [None]
  - OESOPHAGITIS [None]
